FAERS Safety Report 4336048-5 (Version None)
Quarter: 2004Q2

REPORT INFORMATION
  Report Type: 
  Country: None (occurrence: None)
  Receive Date: 20040406
  Receipt Date: 20040322
  Transmission Date: 20050107
  Serious: Yes (Hospitalization)
  Sender: FDA-Public Use
  Company Number: 229890

PATIENT
  Age: 1 Day
  Sex: Female
  Weight: 4.3 kg

DRUGS (2)
  1. ACTRAPID PENFILL HM (GE) 3 ML (INSULIN HUMAN) SOLUTION FOR INJECTION, [Suspect]
     Indication: DIABETES MELLITUS
     Dosage: 12 IU, QD, INTRAUTERINE
     Route: 015
     Dates: start: 20021203, end: 20030701
  2. PROTAPHANE PENFILL HM (GE) (INSULIN HUMAN) [Concomitant]

REACTIONS (14)
  - CAESAREAN SECTION [None]
  - CENTRAL NERVOUS SYSTEM LESION [None]
  - CYANOSIS NEONATAL [None]
  - DIABETIC FOETOPATHY [None]
  - ECCHYMOSIS [None]
  - HYPOGLYCAEMIA NEONATAL [None]
  - HYPOTONIA [None]
  - JAUNDICE NEONATAL [None]
  - MATERNAL DRUGS AFFECTING FOETUS [None]
  - NEONATAL DISORDER [None]
  - OEDEMA [None]
  - RASH PAPULAR [None]
  - SKIN BLEEDING [None]
  - TREMOR NEONATAL [None]
